FAERS Safety Report 5190866-2 (Version None)
Quarter: 2006Q4

REPORT INFORMATION
  Report Type: 
  Country: None (occurrence: None)
  Receive Date: 20061222
  Receipt Date: 20061130
  Transmission Date: 20070319
  Serious: Yes (Other)
  Sender: FDA-Public Use
  Company Number: US-ROCHE-473682

PATIENT
  Age: 49 Year
  Sex: Female

DRUGS (4)
  1. PEGASYS [Suspect]
     Dosage: STRENGTH AND FORMULATION REPORTED AS 180 MCG/0.5ML
     Route: 058
     Dates: start: 20060625
  2. COPEGUS [Suspect]
     Route: 048
     Dates: start: 20060625
  3. BENICAR [Concomitant]
     Indication: HYPERTENSION
     Route: 048
  4. LEXAPRO [Concomitant]
     Indication: DEPRESSION
     Dosage: 20 MG AT NIGHT
     Route: 048
     Dates: start: 20060715

REACTIONS (1)
  - PLEURISY [None]
